FAERS Safety Report 5199288-1 (Version None)
Quarter: 2006Q4

REPORT INFORMATION
  Report Type: 
  Country: None (occurrence: None)
  Receive Date: 20060929
  Receipt Date: 20060105
  Transmission Date: 20070319
  Serious: Yes (Other)
  Sender: FDA-Public Use
  Company Number: US-JNJFOC-20060101469

PATIENT
  Age: 25 Year
  Sex: Female
  Weight: 52.6173 kg

DRUGS (1)
  1. ORTHO TRI-CYCLEN LO [Suspect]
     Indication: CONTRACEPTION
     Dosage: 1 DOSE (S), 1 N 1 DAY, ORAL
     Route: 048
     Dates: start: 20010101, end: 20051001

REACTIONS (3)
  - DRUG EXPOSURE DURING PREGNANCY [None]
  - MENSTRUAL DISORDER [None]
  - PREGNANCY ON ORAL CONTRACEPTIVE [None]
